FAERS Safety Report 13714468 (Version 6)
Quarter: 2022Q1

REPORT INFORMATION
  Report Type: Spontaneous
  Country: BR (occurrence: BR)
  Receive Date: 20170704
  Receipt Date: 20220315
  Transmission Date: 20220423
  Serious: Yes (Other)
  Sender: FDA-Public Use
  Company Number: PHHY2017BR095385

PATIENT
  Sex: Female
  Weight: 55 kg

DRUGS (14)
  1. OCTREOTIDE [Suspect]
     Active Substance: OCTREOTIDE
     Indication: Acromegaly
     Dosage: UNK, EVERY 10 DAYS
     Route: 065
  2. OCTREOTIDE [Suspect]
     Active Substance: OCTREOTIDE
     Dosage: FROM 2002-2003 TO MAR OR APR 2020
     Route: 065
  3. OCTREOTIDE [Suspect]
     Active Substance: OCTREOTIDE
  4. SANDOSTATIN LAR DEPOT [Suspect]
     Active Substance: OCTREOTIDE ACETATE
     Indication: Acromegaly
     Dosage: 30 MG, QMO
     Route: 030
     Dates: start: 1993
  5. SANDOSTATIN LAR DEPOT [Suspect]
     Active Substance: OCTREOTIDE ACETATE
     Dosage: 30 MG, QMO
     Route: 065
  6. SANDOSTATIN LAR DEPOT [Suspect]
     Active Substance: OCTREOTIDE ACETATE
     Dosage: UNK, QMO (EVERY 28 DAYS) (STARTED ON 2002 OR 2003 AND LAST YEAR, WHEN THE PANDEMIC GOT SEVERE AROUND
     Route: 065
  7. SANDOSTATIN LAR DEPOT [Suspect]
     Active Substance: OCTREOTIDE ACETATE
     Dosage: 10 MG, QMO (EVERY 28 DAYS)
     Route: 065
  8. SANDOSTATIN LAR DEPOT [Suspect]
     Active Substance: OCTREOTIDE ACETATE
     Dosage: 20 MG
     Route: 065
  9. SANDOSTATIN LAR DEPOT [Suspect]
     Active Substance: OCTREOTIDE ACETATE
     Dosage: 30 MG
     Route: 065
  10. HYDROCHLOROTHIAZIDE\SPIRONOLACTONE [Concomitant]
     Active Substance: HYDROCHLOROTHIAZIDE\SPIRONOLACTONE
     Indication: Renal impairment
     Dosage: 2 DF, QD
     Route: 048
     Dates: start: 1993
  11. FUROSEMIDE [Concomitant]
     Active Substance: FUROSEMIDE
     Indication: Renal impairment
     Dosage: 2 DF, QD
     Route: 048
     Dates: start: 1993
  12. SERTRALINE [Concomitant]
     Active Substance: SERTRALINE HYDROCHLORIDE
     Indication: Depression
     Dosage: 1 DF, QD (STARTED 14 YEARS AGO)
     Route: 048
  13. LUDIOMIL [Concomitant]
     Active Substance: MAPROTILINE HYDROCHLORIDE
     Indication: Depression
     Dosage: 1 DF, QD
     Route: 048
  14. CLONAZEPAM [Concomitant]
     Active Substance: CLONAZEPAM
     Indication: Sleep disorder
     Dosage: 1 DF, QD (STARTED SO LONG AGO)
     Route: 048

REACTIONS (22)
  - Renal failure [Unknown]
  - Diabetes mellitus [Unknown]
  - Suicidal ideation [Unknown]
  - Fat tissue increased [Unknown]
  - Haemangioma of bone [Recovering/Resolving]
  - Spinal pain [Recovering/Resolving]
  - Fibromyalgia [Recovering/Resolving]
  - Muscle atrophy [Recovering/Resolving]
  - Swelling face [Unknown]
  - Arterial occlusive disease [Not Recovered/Not Resolved]
  - Neoplasm [Unknown]
  - Dyspnoea [Recovering/Resolving]
  - Needle issue [Unknown]
  - Product dose omission issue [Unknown]
  - Pain in extremity [Unknown]
  - Joint swelling [Unknown]
  - Peripheral swelling [Unknown]
  - Oedema peripheral [Unknown]
  - Heart valve stenosis [Unknown]
  - Vision blurred [Unknown]
  - Pain [Unknown]
  - Fear [Unknown]

NARRATIVE: CASE EVENT DATE: 19930101
